FAERS Safety Report 4352168-3 (Version None)
Quarter: 2004Q2

REPORT INFORMATION
  Report Type: 
  Country: None (occurrence: None)
  Receive Date: 20040428
  Receipt Date: 20040414
  Transmission Date: 20050107
  Serious: Yes (Hospitalization)
  Sender: FDA-Public Use
  Company Number: 2004-04-0631

PATIENT
  Age: 83 Year
  Sex: Female

DRUGS (4)
  1. CLARITIN [Suspect]
     Indication: PRURITUS GENERALISED
     Dosage: 10 MG ORAL
     Route: 048
     Dates: start: 20040407, end: 20040410
  2. LASIX [Concomitant]
  3. ALLOPURINOL TAB [Concomitant]
  4. WARFARIN SODIUM [Concomitant]

REACTIONS (1)
  - FACE OEDEMA [None]
